FAERS Safety Report 12877098 (Version 2)
Quarter: 2018Q4

REPORT INFORMATION
  Report Type: Spontaneous
  Country: US (occurrence: US)
  Receive Date: 20161024
  Receipt Date: 20181024
  Transmission Date: 20190204
  Serious: No
  Sender: FDA-Public Use
  Company Number: US-BIOGEN-2016BI00307468

PATIENT
  Sex: Male

DRUGS (2)
  1. TECFIDERA [Suspect]
     Active Substance: DIMETHYL FUMARATE
     Indication: MULTIPLE SCLEROSIS
     Route: 065
     Dates: start: 20130429
  2. TECFIDERA [Suspect]
     Active Substance: DIMETHYL FUMARATE
     Route: 065
     Dates: start: 20160204

REACTIONS (11)
  - Ageusia [Unknown]
  - Vomiting [Unknown]
  - Rhinorrhoea [Unknown]
  - Decreased appetite [Unknown]
  - Hyperhidrosis [Unknown]
  - Night sweats [Unknown]
  - Fatigue [Unknown]
  - Nausea [Unknown]
  - Diarrhoea [Unknown]
  - Dyspepsia [Unknown]
  - Abdominal pain upper [Unknown]
